FAERS Safety Report 8466147-8 (Version None)
Quarter: 2012Q2

REPORT INFORMATION
  Report Type: 
  Country: None (occurrence: None)
  Receive Date: 20120626
  Receipt Date: 20120620
  Transmission Date: 20120825
  Serious: Yes (Hospitalization)
  Sender: FDA-Public Use
  Company Number: US-CELGENEUS-163-21880-12050930

PATIENT
  Sex: Male
  Weight: 79.45 kg

DRUGS (14)
  1. DEXAMETHASONE [Concomitant]
     Route: 065
  2. BACTRIM [Concomitant]
     Route: 065
  3. SYMBICORT [Concomitant]
     Route: 065
  4. VALTREX [Concomitant]
     Route: 065
  5. ATIVAN [Concomitant]
     Route: 065
  6. ALLOPURINOL [Concomitant]
     Route: 065
  7. ZOVIRAX [Concomitant]
     Route: 065
  8. OXYCONTIN [Concomitant]
     Route: 065
  9. MULTI-VITAMINS [Concomitant]
     Route: 065
  10. SENOKOT [Concomitant]
     Route: 065
  11. VITAMIN D [Concomitant]
     Route: 065
  12. REVLIMID [Suspect]
     Indication: MULTIPLE MYELOMA
     Dosage: 25 MILLIGRAM
     Route: 048
     Dates: start: 20120404
  13. OXYCODONE HCL [Concomitant]
     Route: 065
  14. CALCIUM [Concomitant]
     Route: 065

REACTIONS (2)
  - BLOOD SODIUM DECREASED [None]
  - BACTERIAL INFECTION [None]
